FAERS Safety Report 12915240 (Version 1)
Quarter: 2016Q4

REPORT INFORMATION
  Report Type: Spontaneous
  Country: US (occurrence: US)
  Receive Date: 20161106
  Receipt Date: 20161106
  Transmission Date: 20170207
  Serious: No
  Sender: FDA-Public Use
  Company Number: US-RELYPSA-RLY2016002621

PATIENT
  Age: 64 Year
  Sex: Female

DRUGS (17)
  1. LOSARTAN POTASSIUM. [Concomitant]
     Active Substance: LOSARTAN POTASSIUM
  2. HUMULIN NOS [Concomitant]
     Active Substance: INSULIN HUMAN
  3. FISH OIL [Concomitant]
     Active Substance: FISH OIL
  4. COENZYME Q10 [Concomitant]
     Active Substance: UBIDECARENONE
  5. VITAMIN D2 [Concomitant]
     Active Substance: ERGOCALCIFEROL
  6. VELTASSA [Suspect]
     Active Substance: PATIROMER
     Indication: HYPERKALAEMIA
     Dosage: 8.4 G, QD
     Route: 048
  7. BUMEX [Concomitant]
     Active Substance: BUMETANIDE
  8. PROCRIT [Concomitant]
     Active Substance: ERYTHROPOIETIN
  9. AMITRIPTYLINE HCL [Concomitant]
     Active Substance: AMITRIPTYLINE
  10. FELODIPINE. [Concomitant]
     Active Substance: FELODIPINE
  11. NEPHRO-VITE                        /01801401/ [Concomitant]
  12. ATENOLOL. [Concomitant]
     Active Substance: ATENOLOL
  13. PRAVASTATIN SODIUM. [Concomitant]
     Active Substance: PRAVASTATIN SODIUM
  14. CALCITRIOL. [Concomitant]
     Active Substance: CALCITRIOL
  15. FERROUS SULFATE. [Concomitant]
     Active Substance: FERROUS SULFATE
  16. ALLOPURINOL. [Concomitant]
     Active Substance: ALLOPURINOL
  17. OMEPRAZOLE. [Concomitant]
     Active Substance: OMEPRAZOLE

REACTIONS (2)
  - Abdominal distension [Unknown]
  - Dyspepsia [Unknown]

NARRATIVE: CASE EVENT DATE: 20160920
